FAERS Safety Report 21504568 (Version 2)
Quarter: 2022Q4

REPORT INFORMATION
  Report Type: Spontaneous
  Country: US (occurrence: US)
  Receive Date: 20221025
  Receipt Date: 20221117
  Transmission Date: 20230113
  Serious: Yes (Death, Other)
  Sender: FDA-Public Use
  Company Number: US-009507513-2210USA008517

PATIENT
  Age: 66 Year
  Sex: Male
  Weight: 109.75 kg

DRUGS (19)
  1. VERQUVO [Suspect]
     Active Substance: VERICIGUAT
     Indication: Cardiac failure
     Dosage: 1 TABLET BY MOUTH ONCE DAILY
     Route: 048
     Dates: start: 20220823
  2. ENTRESTO [Concomitant]
     Active Substance: SACUBITRIL\VALSARTAN
     Dosage: 1 TABLET BY MOUTH TWICE DAILY
     Route: 048
     Dates: start: 20220825
  3. BENZONATATE [Concomitant]
     Active Substance: BENZONATATE
     Indication: Cough
     Dosage: TAKE 1 TO 2 CAPSULES BY MOUTH EVERY 6 HOURS AS NEEDED
     Route: 048
     Dates: start: 20220405
  4. CARVEDILOL [Concomitant]
     Active Substance: CARVEDILOL
     Dosage: 2 TABLETS BY MOUTH TWICE DAILY
     Route: 048
     Dates: start: 20220701
  5. CYCLOBENZAPRINE [Concomitant]
     Active Substance: CYCLOBENZAPRINE
     Dosage: 1 TABLET EVERY DAY BY ORAL ROUTE AT BEDTIME
     Route: 048
     Dates: start: 20211105
  6. DEXAMETHASONE [Concomitant]
     Active Substance: DEXAMETHASONE
     Dosage: 1 TABLET BY MOUTH TWICE DAILY THE DAY PRIOR, DAY OF, AND DAY AFTER TREATMENT
     Route: 048
     Dates: start: 20220815
  7. DIGOXIN [Concomitant]
     Active Substance: DIGOXIN
     Dosage: 1 TABLET BY MOUTH ONCE DAILY AS DIRECTED FOR 30 DAYS
     Route: 048
     Dates: start: 20220823
  8. DOXYCYCLINE HYCLATE [Concomitant]
     Active Substance: DOXYCYCLINE HYCLATE
     Dosage: 1 TABLET BY MOUTH TWICE DAILY
     Route: 048
     Dates: start: 20220815
  9. FLUDROCORTISONE [Concomitant]
     Active Substance: FLUDROCORTISONE
     Dosage: 1 TABLET BY MOUTH TWICE A DAY
     Route: 048
     Dates: start: 20220901
  10. FOLIC ACID [Concomitant]
     Active Substance: FOLIC ACID
     Dosage: 1 TABLET BY MOUTH ONCE DAILY
     Route: 048
     Dates: start: 20220815
  11. FUROSEMIDE [Concomitant]
     Active Substance: FUROSEMIDE
     Dosage: 1 TABLET EVERY DAY BY ORAL ROUTE.
     Route: 048
     Dates: start: 20220819
  12. FUROSEMIDE [Concomitant]
     Active Substance: FUROSEMIDE
     Dosage: 1 TABLET BY MOUTH ONCE DAILY AS DIRECTED FOR 30 DAYS
     Route: 048
     Dates: start: 20220831
  13. LEVOTHYROXINE [Concomitant]
     Active Substance: LEVOTHYROXINE
     Dosage: 1 TABLET BY MOUTH ONCE DAILY BEFORE BREAKFA0ST
     Route: 048
     Dates: start: 20220619
  14. MORPHINE [Concomitant]
     Active Substance: MORPHINE
     Indication: Pain
     Dosage: 1 TABLET BY MOUTH EVERY 4 TO 6 HOURS AS NEEDED FOR PAIN
     Route: 048
     Dates: start: 20220729
  15. OMEPRAZOLE [Concomitant]
     Active Substance: OMEPRAZOLE
     Dosage: 1 CAPSULE EVERY DAY BY ORAL ROUTE
     Route: 048
     Dates: start: 20220819
  16. OXYCODONE AND ACETAMINOPHEN [Concomitant]
     Active Substance: ACETAMINOPHEN\OXYCODONE HYDROCHLORIDE
     Indication: Pain
     Dosage: 1 TABLET BY MOUTH EVERY 6 HOURS AS NEEDED FOR PAIN
     Route: 048
     Dates: start: 20220414
  17. TRAMADOL [Concomitant]
     Active Substance: TRAMADOL
     Dosage: 1 TABLET BY MOUTH EVERY 12 HOURS AS NEEDED FOR PAIN
     Route: 048
     Dates: start: 20220923
  18. XARELTO [Concomitant]
     Active Substance: RIVAROXABAN
     Dosage: 1 TABLET BY MOUTH TWICE DAILY WITH FOOD FOR 21 DAYS, THEN START 20MG XARELTO ONCE DAILY
     Route: 048
     Dates: start: 20220813
  19. XARELTO [Concomitant]
     Active Substance: RIVAROXABAN
     Dosage: 1 TABLET ONCE DAILY WITH FOOD (BEGIN THIS AFTER COMPLETING 15MG TABLETS)
     Route: 048
     Dates: start: 20220813

REACTIONS (1)
  - Lung neoplasm malignant [Fatal]

NARRATIVE: CASE EVENT DATE: 20221004
